FAERS Safety Report 8911920 (Version 2)
Quarter: 2013Q4

REPORT INFORMATION
  Report Type: Spontaneous
  Country: JP (occurrence: JP)
  Receive Date: 20121115
  Receipt Date: 20131224
  Transmission Date: 20140711
  Serious: Yes (Other)
  Sender: FDA-Public Use
  Company Number: JP-GILEAD-2012-0064599

PATIENT
  Age: 78 Year
  Sex: Male

DRUGS (4)
  1. HEPSERA [Suspect]
     Indication: HEPATITIS B
     Dosage: UNK
     Route: 048
  2. HEPSERA [Suspect]
     Dosage: UNK UNK, QOD
     Route: 048
  3. HEPSERA [Suspect]
     Dosage: UNK, Q3DAYS
  4. ZEEFIX [Suspect]
     Indication: HEPATITIS B
     Route: 048

REACTIONS (19)
  - Metastasis [Unknown]
  - Pleural effusion [Unknown]
  - Pulmonary mass [Unknown]
  - Pulmonary tuberculosis [Unknown]
  - Osteomalacia [Recovered/Resolved]
  - Fanconi syndrome acquired [Unknown]
  - Rib fracture [Unknown]
  - Femoral neck fracture [Unknown]
  - Hepatitis B DNA assay positive [Unknown]
  - Back pain [Unknown]
  - Fall [Unknown]
  - Pain in extremity [Unknown]
  - Pain [Unknown]
  - Oedema peripheral [Unknown]
  - Gait disturbance [Unknown]
  - Drug resistance [Unknown]
  - Bone density decreased [Unknown]
  - Blood alkaline phosphatase increased [Recovering/Resolving]
  - Blood phosphorus decreased [Recovered/Resolved]
